FAERS Safety Report 4578371-5 (Version None)
Quarter: 2005Q1

REPORT INFORMATION
  Report Type: 
  Country: None (occurrence: None)
  Receive Date: 20050202
  Receipt Date: 20050202
  Transmission Date: 20050727
  Serious: Yes (Hospitalization)
  Sender: FDA-Public Use
  Company Number: None

PATIENT
  Age: 76 Year
  Sex: Male
  Weight: 93 kg

DRUGS (5)
  1. LOVASTATIN [Suspect]
     Dosage: 20 MG PO DAILY
  2. FLUCONAZOLE [Suspect]
     Dosage: DAILY PO 100MG X 6 DAYS
     Route: 048
  3. PLENDIL [Concomitant]
  4. ADVAIR DISKUS 100/50 [Concomitant]
  5. REMERON [Concomitant]

REACTIONS (3)
  - DRUG INTERACTION [None]
  - SYNCOPE [None]
  - VENTRICULAR TACHYCARDIA [None]
